FAERS Safety Report 14342991 (Version 1)
Quarter: 2017Q4

REPORT INFORMATION
  Report Type: Spontaneous
  Country: US (occurrence: US)
  Receive Date: 20171229
  Receipt Date: 20171229
  Transmission Date: 20180321
  Serious: No
  Sender: FDA-Public Use
  Company Number: None

PATIENT
  Age: 50 Year
  Sex: Female
  Weight: 94.5 kg

DRUGS (9)
  1. FISH OIL [Concomitant]
     Active Substance: FISH OIL
  2. MAGNESIUM [Concomitant]
     Active Substance: MAGNESIUM
  3. FOLIC [Concomitant]
     Active Substance: FOLIC ACID
  4. VITAMIN B12 [Concomitant]
     Active Substance: CYANOCOBALAMIN
  5. LEVOTHYROZINE [Concomitant]
  6. FLAX OIL [Concomitant]
  7. ELIDEL [Suspect]
     Active Substance: PIMECROLIMUS
     Indication: ECZEMA
     Dosage: ?          QUANTITY:1 CREAM;?
     Route: 061
     Dates: start: 20171219, end: 20171221
  8. BOITIN [Concomitant]
  9. IRON [Concomitant]
     Active Substance: IRON

REACTIONS (3)
  - Burning sensation [None]
  - Eczema [None]
  - Sleep disorder due to a general medical condition [None]

NARRATIVE: CASE EVENT DATE: 20171221
